FAERS Safety Report 4948873-8 (Version None)
Quarter: 2006Q1

REPORT INFORMATION
  Report Type: 
  Country: None (occurrence: None)
  Receive Date: 20060321
  Receipt Date: 20051221
  Transmission Date: 20060701
  Serious: Yes (Other)
  Sender: FDA-Public Use
  Company Number: HQWYE131422DEC05

PATIENT
  Sex: Male

DRUGS (3)
  1. ENBREL [Suspect]
     Indication: RHEUMATOID ARTHRITIS
     Route: 058
     Dates: start: 20050614, end: 20051206
  2. NORVASC [Concomitant]
  3. VOLTAREN [Concomitant]

REACTIONS (2)
  - CHEST X-RAY ABNORMAL [None]
  - INJECTION SITE REACTION [None]
